FAERS Safety Report 6358701-4 (Version None)
Quarter: 2009Q3

REPORT INFORMATION
  Report Type: 
  Country: None (occurrence: None)
  Receive Date: 20090916
  Receipt Date: 20090625
  Transmission Date: 20100115
  Serious: No
  Sender: FDA-Public Use
  Company Number: US-ABBOTT-09P-163-0582458-00

PATIENT
  Sex: Male

DRUGS (2)
  1. TRILIPIX [Suspect]
     Indication: DRUG USE FOR UNKNOWN INDICATION
     Dates: start: 20090616
  2. ZOSTAVAX [Concomitant]
     Indication: HERPES ZOSTER
     Dosage: ONE TIME DOSE
     Dates: start: 20090618, end: 20090618

REACTIONS (1)
  - RASH [None]
